FAERS Safety Report 17727989 (Version 14)
Quarter: 2025Q3

REPORT INFORMATION
  Report Type: Report from Study
  Country: US (occurrence: US)
  Receive Date: 20200430
  Receipt Date: 20250901
  Transmission Date: 20251021
  Serious: Yes (Other)
  Sender: TAKEDA
  Company Number: US-SHIRE-US202014928

PATIENT
  Age: 73 Year
  Sex: Female
  Weight: 71 kg

DRUGS (25)
  1. HUMAN IMMUNOGLOBULIN G [Suspect]
     Active Substance: HUMAN IMMUNOGLOBULIN G
     Indication: Eosinophilia
     Dosage: 9 GRAM, 1/WEEK
  2. HUMAN IMMUNOGLOBULIN G [Suspect]
     Active Substance: HUMAN IMMUNOGLOBULIN G
     Indication: Immunodeficiency common variable
  3. ACETAMINOPHEN [Concomitant]
     Active Substance: ACETAMINOPHEN
  4. DIPHENHYDRAMINE [Concomitant]
     Active Substance: DIPHENHYDRAMINE
  5. EPINEPHRINE [Concomitant]
     Active Substance: EPINEPHRINE
  6. Lmx [Concomitant]
  7. OLMESARTAN [Concomitant]
     Active Substance: OLMESARTAN
  8. HYDROXYZINE [Concomitant]
     Active Substance: HYDROXYZINE HYDROCHLORIDE
  9. ITRACONAZOLE [Concomitant]
     Active Substance: ITRACONAZOLE
  10. TRIAMTERENE AND HYDROCHLOROTHIAZIDE [Concomitant]
     Active Substance: HYDROCHLOROTHIAZIDE\TRIAMTERENE
  11. ALLEGRA [Concomitant]
     Active Substance: FEXOFENADINE HYDROCHLORIDE
  12. VITAMIN D2 [Concomitant]
     Active Substance: ERGOCALCIFEROL
  13. TOBRAMYCIN [Concomitant]
     Active Substance: TOBRAMYCIN
  14. FASENRA [Concomitant]
     Active Substance: BENRALIZUMAB
  15. SALINE [Concomitant]
     Active Substance: SODIUM CHLORIDE
  16. ACIDOPHILUS [Concomitant]
     Active Substance: LACTOBACILLUS ACIDOPHILUS
  17. ALVESCO [Concomitant]
     Active Substance: CICLESONIDE
  18. PEPCID [Concomitant]
     Active Substance: FAMOTIDINE
  19. XOLAIR [Concomitant]
     Active Substance: OMALIZUMAB
  20. UNSPECIFIED INGREDIENT [Concomitant]
     Active Substance: UNSPECIFIED INGREDIENT
  21. VITAMIN D [Concomitant]
     Active Substance: VITAMIN D NOS
  22. ALLEGRA ALLERGY [Concomitant]
     Active Substance: FEXOFENADINE HYDROCHLORIDE
  23. OLMESARTAN MEDOXOMIL [Concomitant]
     Active Substance: OLMESARTAN MEDOXOMIL
  24. LIDOCAINE [Concomitant]
     Active Substance: LIDOCAINE
  25. DIPHENHYDRAMINE HYDROCHLORIDE [Concomitant]
     Active Substance: DIPHENHYDRAMINE HYDROCHLORIDE

REACTIONS (11)
  - Cataract [Unknown]
  - COVID-19 [Unknown]
  - Laryngitis [Unknown]
  - Tooth infection [Unknown]
  - Injection site discomfort [Unknown]
  - Product dose omission issue [Unknown]
  - Gastrooesophageal reflux disease [Recovered/Resolved]
  - Sinusitis [Unknown]
  - Infusion site haemorrhage [Unknown]
  - Back pain [Unknown]
  - Infusion site pain [Unknown]

NARRATIVE: CASE EVENT DATE: 20220728
